FAERS Safety Report 5840485-7 (Version None)
Quarter: 2008Q3

REPORT INFORMATION
  Report Type: 
  Country: None (occurrence: None)
  Receive Date: 20080811
  Receipt Date: 20080620
  Transmission Date: 20090109
  Serious: No
  Sender: FDA-Public Use
  Company Number: US-BAYER-200812825BCC

PATIENT
  Age: 46 Year
  Sex: Female
  Weight: 98 kg

DRUGS (1)
  1. ALEVE [Suspect]
     Indication: ANALGESIA
     Route: 048

REACTIONS (1)
  - JOINT SWELLING [None]
